FAERS Safety Report 9189452 (Version 1)
Quarter: 2013Q1

REPORT INFORMATION
  Report Type: Spontaneous
  Country: US (occurrence: None)
  Receive Date: 20130322
  Receipt Date: 20130322
  Transmission Date: 20140127
  Serious: Yes (Other)
  Sender: FDA-Public Use
  Company Number: NSR_01064_2013

PATIENT
  Age: 14 Year
  Sex: Male

DRUGS (2)
  1. BACLOFEN [Suspect]
     Indication: PRODUCT USED FOR UNKNOWN INDICATION
     Dosage: MAINTENACE DOSES RANGED FROM 22 MICROGRAMS TO 1.4 MG, DEPENDING ON PATIENT RESPONSE)
     Route: 037
  2. OXCARBAZEPINE [Concomitant]

REACTIONS (5)
  - Crying [None]
  - Insomnia [None]
  - Hypophagia [None]
  - Muscle spasticity [None]
  - Dysphoria [None]
